FAERS Safety Report 8348193-8 (Version None)
Quarter: 2012Q2

REPORT INFORMATION
  Report Type: 
  Country: None (occurrence: None)
  Receive Date: 20120509
  Receipt Date: 20120501
  Transmission Date: 20120825
  Serious: Yes (Hospitalization)
  Sender: FDA-Public Use
  Company Number: US-VERTEX PHARMACEUTICALS INC.-AE-2012-005515

PATIENT
  Sex: Male

DRUGS (10)
  1. LISINOPRIL [Concomitant]
  2. HYDROCODONE BITARTRATE [Concomitant]
  3. EFFEXOR [Concomitant]
  4. NEXIUM [Concomitant]
  5. NORVASC [Concomitant]
  6. INCIVEK [Suspect]
     Indication: HEPATITIS C
     Route: 048
     Dates: start: 20110817, end: 20110829
  7. PEGASYS [Concomitant]
     Indication: HEPATITIS C
     Route: 058
     Dates: start: 20110817, end: 20110829
  8. M.V.I. [Concomitant]
  9. RIBAVIRIN [Concomitant]
     Indication: HEPATITIS C
     Route: 048
     Dates: start: 20110817, end: 20110829
  10. METOPROLOL TARTRATE [Concomitant]

REACTIONS (2)
  - RENAL FAILURE ACUTE [None]
  - OFF LABEL USE [None]
